FAERS Safety Report 6878327-3 (Version None)
Quarter: 2010Q3

REPORT INFORMATION
  Report Type: 
  Country: None (occurrence: None)
  Receive Date: 20100728
  Receipt Date: 20100719
  Transmission Date: 20110219
  Serious: Yes (Hospitalization, Other)
  Sender: FDA-Public Use
  Company Number: US-SANOFI-AVENTIS-2010SA042658

PATIENT
  Sex: Female

DRUGS (3)
  1. PLAVIX [Suspect]
     Indication: STENT PLACEMENT
     Route: 048
     Dates: start: 20090101
  2. ASPIRIN [Suspect]
     Indication: THROMBOSIS PROPHYLAXIS
     Route: 065
  3. COUMADIN [Suspect]
     Indication: THROMBOSIS PROPHYLAXIS
     Route: 065
     Dates: end: 20100101

REACTIONS (5)
  - AKINESIA [None]
  - ARTERIAL OCCLUSIVE DISEASE [None]
  - LOSS OF CONSCIOUSNESS [None]
  - PAIN [None]
  - SPINAL CORD HAEMORRHAGE [None]
